FAERS Safety Report 16830800 (Version 1)
Quarter: 2019Q3

REPORT INFORMATION
  Report Type: Report from Study
  Country: None (occurrence: CO)
  Receive Date: 20190920
  Receipt Date: 20190920
  Transmission Date: 20191005
  Serious: Yes (Hospitalization, Other)
  Sender: FDA-Public Use
  Company Number: CO-ABBVIE-19K-036-2929139-00

PATIENT
  Age: 74 Year
  Sex: Female
  Weight: 53 kg

DRUGS (1)
  1. HUMIRA [Suspect]
     Active Substance: ADALIMUMAB
     Indication: CROHN^S DISEASE
     Route: 058
     Dates: start: 20180713, end: 2019

REACTIONS (10)
  - Faecal calprotectin abnormal [Recovering/Resolving]
  - Hospitalisation [Recovered/Resolved]
  - Spondylitis [Recovering/Resolving]
  - Hyperhidrosis [Recovering/Resolving]
  - Back pain [Unknown]
  - Herpes virus infection [Recovering/Resolving]
  - Blood glucose increased [Recovering/Resolving]
  - Oxygen saturation decreased [Recovering/Resolving]
  - Chest pain [Recovering/Resolving]
  - Pneumonia [Recovering/Resolving]

NARRATIVE: CASE EVENT DATE: 201901
